FAERS Safety Report 7538165-5 (Version None)
Quarter: 2011Q2

REPORT INFORMATION
  Report Type: 
  Country: None (occurrence: None)
  Receive Date: 20110609
  Receipt Date: 20011203
  Transmission Date: 20111010
  Serious: Yes (Death)
  Sender: FDA-Public Use
  Company Number: PHBS2001CA06273

PATIENT
  Sex: Female

DRUGS (3)
  1. INSULIN [Concomitant]
  2. CLOZAPINE [Suspect]
     Indication: SCHIZOPHRENIA
     Dosage: 500 MG, QHS
     Route: 048
     Dates: start: 20000719
  3. LORAZEPAM [Concomitant]
     Dosage: .5 MG, PRN

REACTIONS (2)
  - CHOKING [None]
  - ASPIRATION [None]
